FAERS Safety Report 5127192-3 (Version None)
Quarter: 2006Q4

REPORT INFORMATION
  Report Type: 
  Country: None (occurrence: None)
  Receive Date: 20061010
  Receipt Date: 20060928
  Transmission Date: 20070319
  Serious: Yes (Other)
  Sender: FDA-Public Use
  Company Number: 2006-00818

PATIENT
  Age: 66 Year
  Sex: Female
  Weight: 92.1 kg

DRUGS (4)
  1. VELCADE [Suspect]
     Indication: MULTIPLE MYELOMA
     Dosage: 1.30 MG/M2, INTRAVENOUS
     Route: 042
     Dates: start: 20060220, end: 20060504
  2. DEXAMETHASONE TAB [Concomitant]
  3. HYDROCHLOROTHIAZIDE [Concomitant]
  4. VERAPAMIL [Concomitant]

REACTIONS (10)
  - DYSPHAGIA [None]
  - DYSPNOEA [None]
  - EYE INFECTION [None]
  - FATIGUE [None]
  - FLANK PAIN [None]
  - HELICOBACTER GASTRITIS [None]
  - NAUSEA [None]
  - NEUTROPENIA [None]
  - THERAPY NON-RESPONDER [None]
  - WEIGHT DECREASED [None]
